FAERS Safety Report 11662128 (Version 1)
Quarter: 2015Q4

REPORT INFORMATION
  Report Type: Spontaneous
  Country: JP (occurrence: JP)
  Receive Date: 20151026
  Receipt Date: 20151026
  Transmission Date: 20160304
  Serious: Yes (Other)
  Sender: FDA-Public Use
  Company Number: PHJP1992JP000631

PATIENT
  Age: 41 Year
  Sex: Male
  Weight: 78 kg

DRUGS (5)
  1. DASEN [Concomitant]
     Indication: PRODUCT USED FOR UNKNOWN INDICATION
     Route: 048
     Dates: start: 19901116, end: 19901118
  2. BACCIDAL [Concomitant]
     Active Substance: NORFLOXACIN
     Indication: PRODUCT USED FOR UNKNOWN INDICATION
     Route: 048
     Dates: start: 19901116, end: 19901118
  3. S.M.                               /00273401/ [Concomitant]
     Indication: PRODUCT USED FOR UNKNOWN INDICATION
     Route: 048
     Dates: start: 19901116, end: 19901118
  4. ALLERGIN [Concomitant]
     Indication: PRODUCT USED FOR UNKNOWN INDICATION
     Route: 048
     Dates: start: 19901116, end: 19901118
  5. VOLTAREN [Suspect]
     Active Substance: DICLOFENAC SODIUM
     Indication: PRODUCT USED FOR UNKNOWN INDICATION
     Route: 048
     Dates: start: 19901116, end: 19901118

REACTIONS (10)
  - Renal failure [Recovered/Resolved]
  - Liver disorder [Recovered/Resolved]
  - Nasopharyngitis [None]
  - Altered state of consciousness [None]
  - Pneumothorax [None]
  - Respiratory failure [Recovered/Resolved]
  - Gastrointestinal haemorrhage [Recovered/Resolved]
  - Jaundice [None]
  - Erythema multiforme [None]
  - Haemodialysis [None]

NARRATIVE: CASE EVENT DATE: 19901119
